FAERS Safety Report 23196679 (Version 1)
Quarter: 2023Q4

REPORT INFORMATION
  Report Type: Spontaneous
  Country: GB (occurrence: GB)
  Receive Date: 20231117
  Receipt Date: 20231117
  Transmission Date: 20240110
  Serious: Yes (Other)
  Sender: FDA-Public Use
  Company Number: None

PATIENT
  Age: 42 Year
  Sex: Female
  Weight: 63 kg

DRUGS (1)
  1. MIRENA [Suspect]
     Active Substance: LEVONORGESTREL
     Indication: Anaemia
     Dosage: 20?G/DAY
     Route: 015
     Dates: start: 20230427, end: 20230723

REACTIONS (19)
  - Chemical poisoning [Recovered/Resolved]
  - Headache [Recovered/Resolved]
  - Sensation of foreign body [Recovered/Resolved]
  - Oropharyngeal pain [Recovered/Resolved]
  - Pharyngeal swelling [Recovered/Resolved]
  - Peripheral swelling [Recovered/Resolved]
  - Joint swelling [Recovered/Resolved]
  - Asthenia [Recovered/Resolved]
  - Gait disturbance [Recovered/Resolved]
  - Pain [Recovered/Resolved]
  - Tremor [Recovered/Resolved]
  - Pain in extremity [Recovered/Resolved]
  - Musculoskeletal stiffness [Recovered/Resolved]
  - Depression [Recovered/Resolved]
  - Fatigue [Recovered/Resolved]
  - Brain fog [Recovered/Resolved]
  - Raynaud^s phenomenon [Recovered/Resolved]
  - Device use issue [None]
  - Off label use of device [None]

NARRATIVE: CASE EVENT DATE: 20230501
